FAERS Safety Report 8938587 (Version 3)
Quarter: 2013Q1

REPORT INFORMATION
  Report Type: Report from Study
  Country: US (occurrence: US)
  Receive Date: 20121203
  Receipt Date: 20130318
  Transmission Date: 20140127
  Serious: Yes (Death)
  Sender: FDA-Public Use
  Company Number: US-NAPPMUNDI-USA-2012-0090815

PATIENT
  Age: 33 Year
  Sex: Female
  Weight: 126.98 kg

DRUGS (13)
  1. OXY CR [Suspect]
     Indication: BACK PAIN
     Dosage: 20 MG, BID
     Route: 048
     Dates: start: 20120717, end: 20120719
  2. OXY CR [Suspect]
     Dosage: 30 MG, BID
     Route: 048
     Dates: start: 20120720, end: 20120722
  3. OXY CR [Suspect]
     Dosage: 40 MG, BID
     Route: 048
     Dates: start: 20120723, end: 20120728
  4. OXYCODONE HCL IMMEDIATE RELEASE (91-490) [Suspect]
     Indication: PRODUCT USED FOR UNKNOWN INDICATION
     Dosage: 5 MG, PRN
     Route: 048
     Dates: start: 20120717, end: 20120728
  5. LORTAB                             /00607101/ [Concomitant]
     Indication: BACK PAIN
     Dosage: 10 MG, UNK
     Dates: start: 20120115, end: 20120717
  6. NEUROTIN                           /00949202/ [Concomitant]
     Indication: BACK PAIN
     Dosage: 1200 MG, TID
     Dates: start: 20120326
  7. XANAX [Concomitant]
     Indication: ANXIETY
     Dosage: 1 MG, BID
     Dates: start: 2010
  8. REMERON [Concomitant]
     Indication: INSOMNIA
     Dosage: 30 MG, HS
     Dates: start: 201106
  9. ADDERALL [Concomitant]
     Indication: FATIGUE
     Dosage: 10 MG, BID
     Dates: start: 201106
  10. MULTIVITAMIN                       /00097801/ [Concomitant]
     Indication: SUPPLEMENTATION THERAPY
     Dosage: UNK
     Dates: start: 201101
  11. ZANAFLEX [Concomitant]
     Indication: BACK PAIN
     Dosage: 4 MG, HS
     Dates: start: 20120115
  12. FLEXERIL                           /00428402/ [Concomitant]
     Indication: MUSCLE SPASMS
     Dosage: 10 MG, TID
     Dates: start: 20120620
  13. BENADRYL                           /00000402/ [Concomitant]
     Indication: PRURITUS
     Dosage: 25 MG, PRN
     Dates: start: 2000

REACTIONS (1)
  - Overdose [Fatal]
